FAERS Safety Report 11445890 (Version 1)
Quarter: 2015Q3

REPORT INFORMATION
  Report Type: Spontaneous
  Country: US (occurrence: US)
  Receive Date: 20150831
  Receipt Date: 20150831
  Transmission Date: 20151125
  Serious: No
  Sender: FDA-Public Use
  Company Number: US-ELI_LILLY_AND_COMPANY-US200808002345

PATIENT
  Sex: Female
  Weight: 86.17 kg

DRUGS (7)
  1. CYMBALTA [Suspect]
     Active Substance: DULOXETINE HYDROCHLORIDE
     Indication: NEURALGIA
  2. FENTANYL. [Concomitant]
     Active Substance: FENTANYL
     Indication: MUSCULOSKELETAL PAIN
     Dosage: 37.5 UG, UNK
     Route: 061
     Dates: start: 2006, end: 2007
  3. VALPROATE SEMISODIUM [Concomitant]
     Active Substance: DIVALPROEX SODIUM
     Indication: PAIN
     Dosage: 250 MG, 3/D
     Dates: start: 2005
  4. FENTANYL. [Concomitant]
     Active Substance: FENTANYL
     Dosage: 37.5 UG, UNK
     Route: 061
     Dates: start: 2007, end: 2007
  5. FENTANYL. [Concomitant]
     Active Substance: FENTANYL
     Dosage: 37.5 UG, UNK
     Route: 061
     Dates: start: 2007, end: 200802
  6. ULTRAM [Concomitant]
     Active Substance: TRAMADOL HYDROCHLORIDE
     Indication: MUSCULOSKELETAL PAIN
     Dosage: 1 D/F, AS NEEDED
  7. FENTANYL. [Concomitant]
     Active Substance: FENTANYL
     Dosage: 37.5 UG, UNK
     Dates: start: 200802

REACTIONS (2)
  - Fatigue [Not Recovered/Not Resolved]
  - Joint dislocation [Not Recovered/Not Resolved]

NARRATIVE: CASE EVENT DATE: 2006
